FAERS Safety Report 7144599-3 (Version None)
Quarter: 2010Q4

REPORT INFORMATION
  Report Type: 
  Country: None (occurrence: None)
  Receive Date: 20101208
  Receipt Date: 20101125
  Transmission Date: 20110411
  Serious: Yes (Hospitalization)
  Sender: FDA-Public Use
  Company Number: IT-BAYER-2010-000887

PATIENT
  Sex: Male

DRUGS (1)
  1. CIPROFLOXACIN [Suspect]

REACTIONS (1)
  - RHABDOMYOLYSIS [None]
